FAERS Safety Report 4393849-5 (Version None)
Quarter: 2004Q3

REPORT INFORMATION
  Report Type: 
  Country: None (occurrence: None)
  Receive Date: 20040701
  Receipt Date: 20040617
  Transmission Date: 20050211
  Serious: Yes (Other)
  Sender: FDA-Public Use
  Company Number: ALMO2004027

PATIENT
  Age: 45 Year
  Sex: Female

DRUGS (2)
  1. AXERT [Suspect]
  2. ORAL CONTRACEPTIVE [Concomitant]

REACTIONS (1)
  - CEREBROVASCULAR ACCIDENT [None]
